FAERS Safety Report 24151590 (Version 1)
Quarter: 2024Q3

REPORT INFORMATION
  Report Type: Spontaneous
  Country: US (occurrence: US)
  Receive Date: 20240730
  Receipt Date: 20240730
  Transmission Date: 20241016
  Serious: No
  Sender: PERRIGO
  Company Number: US-PERRIGO-23US013498

PATIENT
  Age: 73 Year
  Sex: Female
  Weight: 56.689 kg

DRUGS (3)
  1. LORATADINE [Suspect]
     Active Substance: LORATADINE
     Indication: Perennial allergy
     Dosage: 10 MG, QD
     Route: 048
     Dates: end: 20231124
  2. LORATADINE [Suspect]
     Active Substance: LORATADINE
     Indication: Nasal congestion
     Dosage: 10 MG, SINGLE
     Route: 048
     Dates: start: 20231122, end: 20231122
  3. LORATADINE [Suspect]
     Active Substance: LORATADINE
     Indication: Sneezing

REACTIONS (3)
  - Extra dose administered [Recovered/Resolved]
  - Expired product administered [Recovered/Resolved]
  - Drug effective for unapproved indication [Unknown]

NARRATIVE: CASE EVENT DATE: 20230401
